FAERS Safety Report 8354866-3 (Version None)
Quarter: 2012Q2

REPORT INFORMATION
  Report Type: 
  Country: None (occurrence: None)
  Receive Date: 20120511
  Receipt Date: 20120430
  Transmission Date: 20120825
  Serious: Yes (Hospitalization)
  Sender: FDA-Public Use
  Company Number: US-JNJFOC-20111007314

PATIENT
  Sex: Male
  Weight: 60.5 kg

DRUGS (7)
  1. PRILOSEC [Concomitant]
  2. PREDNISONE TAB [Concomitant]
  3. INFLIXIMAB, RECOMBINANT [Suspect]
     Indication: CROHN'S DISEASE
     Route: 042
     Dates: start: 20110919
  4. INFLIXIMAB, RECOMBINANT [Suspect]
     Route: 042
     Dates: start: 20100917
  5. ANTIBIOTICS [Concomitant]
     Indication: INFLAMMATORY BOWEL DISEASE
  6. PROTONIX [Concomitant]
  7. MESALAMINE [Concomitant]
     Route: 048

REACTIONS (2)
  - CROHN'S DISEASE [None]
  - CLOSTRIDIAL INFECTION [None]
